FAERS Safety Report 16118928 (Version 2)
Quarter: 2019Q2

REPORT INFORMATION
  Report Type: Spontaneous
  Country: GB (occurrence: GB)
  Receive Date: 20190326
  Receipt Date: 20190404
  Transmission Date: 20190711
  Serious: Yes (Death, Other)
  Sender: FDA-Public Use
  Company Number: GB-PFIZER INC-2019129638

PATIENT
  Age: 34 Year
  Sex: Male
  Weight: 58 kg

DRUGS (5)
  1. BECLOMETASONE [Concomitant]
     Active Substance: BECLOMETHASONE DIPROPIONATE
     Dosage: UNK
  2. AMIODARONE HCL [Suspect]
     Active Substance: AMIODARONE HYDROCHLORIDE
     Indication: ARRHYTHMIA
     Dosage: 900 MG, TOTAL (LOADING DOSE)
     Route: 048
     Dates: start: 20171015, end: 201710
  3. AMIODARONE HCL [Suspect]
     Active Substance: AMIODARONE HYDROCHLORIDE
     Dosage: 600 MG, DAILY
     Route: 048
     Dates: start: 201710, end: 20180118
  4. SOTALOL HYDROCHLORIDE. [Concomitant]
     Active Substance: SOTALOL HYDROCHLORIDE
     Dosage: UNK
  5. SODIUM VALPROATE [Concomitant]
     Active Substance: VALPROATE SODIUM
     Dosage: UNK

REACTIONS (7)
  - Contusion [Fatal]
  - Rash generalised [Fatal]
  - Peripheral swelling [Fatal]
  - Angiosarcoma [Fatal]
  - Skin exfoliation [Fatal]
  - Prescribed overdose [Fatal]
  - Contraindicated product prescribed [Fatal]

NARRATIVE: CASE EVENT DATE: 20171130
